FAERS Safety Report 10612113 (Version 1)
Quarter: 2014Q4

REPORT INFORMATION
  Report Type: Report from Study
  Country: US (occurrence: US)
  Receive Date: 20141127
  Receipt Date: 20141127
  Transmission Date: 20150529
  Serious: No
  Sender: FDA-Public Use
  Company Number: US-AMGEN-USASL2014091444

PATIENT
  Age: 62 Year
  Sex: Female
  Weight: 52.61 kg

DRUGS (1)
  1. ENBREL [Suspect]
     Active Substance: ETANERCEPT
     Indication: RHEUMATOID ARTHRITIS
     Dosage: 50 MG, QWK
     Route: 058
     Dates: start: 2008, end: 201411

REACTIONS (5)
  - Treatment failure [Unknown]
  - Swelling [Unknown]
  - Drug ineffective [Unknown]
  - Pain [Unknown]
  - Gait disturbance [Unknown]
